FAERS Safety Report 8201205-4 (Version None)
Quarter: 2012Q1

REPORT INFORMATION
  Report Type: 
  Country: None (occurrence: None)
  Receive Date: 20120312
  Receipt Date: 20120305
  Transmission Date: 20120608
  Serious: Yes (Other)
  Sender: FDA-Public Use
  Company Number: PHHY2012JP017589

PATIENT
  Age: 77 Year
  Sex: Female

DRUGS (3)
  1. ZOMETA [Suspect]
     Indication: METASTASES TO BONE
     Dosage: 4 MG PER ADMINISTRATION
     Route: 041
     Dates: start: 20110128, end: 20110824
  2. DIOVAN [Concomitant]
     Dosage: 40 MG, UNK
     Route: 048
  3. ALDACTONE [Concomitant]
     Dosage: 25 MG, UNK

REACTIONS (1)
  - ECZEMA [None]
